FAERS Safety Report 8304315-6 (Version None)
Quarter: 2012Q2

REPORT INFORMATION
  Report Type: 
  Country: None (occurrence: None)
  Receive Date: 20120423
  Receipt Date: 20120423
  Transmission Date: 20120825
  Serious: Yes (Life-Threatening, Other)
  Sender: FDA-Public Use
  Company Number: None

PATIENT
  Age: 55 Year
  Sex: Female
  Weight: 58.513 kg

DRUGS (2)
  1. MANNITOL [Concomitant]
  2. COPAXONE [Suspect]
     Indication: MULTIPLE SCLEROSIS
     Dosage: ONE SYRINGE
     Route: 058

REACTIONS (3)
  - CHEST DISCOMFORT [None]
  - PANIC ATTACK [None]
  - DRUG HYPERSENSITIVITY [None]
